FAERS Safety Report 17725453 (Version 1)
Quarter: 2020Q2

REPORT INFORMATION
  Report Type: Spontaneous
  Country: DE (occurrence: DE)
  Receive Date: 20200429
  Receipt Date: 20200429
  Transmission Date: 20200714
  Serious: Yes (Other)
  Sender: FDA-Public Use
  Company Number: NVSC2020DE115331

PATIENT
  Sex: Female

DRUGS (1)
  1. METOHEXAL SUCC 47,5 MG RETARDTABLETTEN [Suspect]
     Active Substance: METOPROLOL SUCCINATE
     Indication: HYPERTENSION
     Dosage: UNK, QD
     Route: 065
     Dates: start: 202004

REACTIONS (3)
  - Diarrhoea [Unknown]
  - Myocardial infarction [Unknown]
  - Abdominal pain [Unknown]
